FAERS Safety Report 13744539 (Version 3)
Quarter: 2017Q3

REPORT INFORMATION
  Report Type: Spontaneous
  Country: US (occurrence: US)
  Receive Date: 20170712
  Receipt Date: 20170912
  Transmission Date: 20171127
  Serious: No
  Sender: FDA-Public Use
  Company Number: US-LEO PHARMA-303657

PATIENT
  Age: 56 Year
  Sex: Female

DRUGS (2)
  1. PICATO [Suspect]
     Active Substance: INGENOL MEBUTATE
     Indication: SQUAMOUS CELL CARCINOMA
  2. PICATO [Suspect]
     Active Substance: INGENOL MEBUTATE
     Indication: ACTINIC KERATOSIS
     Dosage: APPLIED 1ST TUBE ON FIRST DAY AND DID NOT APPLY ENTIRE TUBE ON 2ND DAY. THE FOLLOWING DAY USED PARTI
     Route: 061
     Dates: start: 20170704, end: 20170706

REACTIONS (6)
  - Application site discharge [Recovered/Resolved]
  - Application site pain [Recovered/Resolved]
  - Application site pain [Recovered/Resolved]
  - Application site scab [Recovered/Resolved]
  - Product use in unapproved indication [Unknown]
  - Application site vesicles [Recovered/Resolved]

NARRATIVE: CASE EVENT DATE: 20170704
